FAERS Safety Report 5184146-9 (Version None)
Quarter: 2006Q4

REPORT INFORMATION
  Report Type: 
  Country: None (occurrence: None)
  Receive Date: 20061220
  Receipt Date: 20060213
  Transmission Date: 20070319
  Serious: No
  Sender: FDA-Public Use
  Company Number: US-GLAXOSMITHKLINE-A0593426A

PATIENT
  Age: 69 Year
  Sex: Male

DRUGS (4)
  1. TARGET NTS 21MG [Suspect]
     Dates: start: 20060128, end: 20060209
  2. COMMIT [Suspect]
  3. NASONEX [Concomitant]
     Indication: SINUS DISORDER
  4. PHOSPHATIDYL SERINE [Concomitant]

REACTIONS (4)
  - APPLICATION SITE ERYTHEMA [None]
  - ASTHENIA [None]
  - RASH [None]
  - SLUGGISHNESS [None]
